FAERS Safety Report 13267588 (Version 1)
Quarter: 2017Q1

REPORT INFORMATION
  Report Type: Spontaneous
  Country: US (occurrence: US)
  Receive Date: 20170224
  Receipt Date: 20170224
  Transmission Date: 20170428
  Serious: No
  Sender: FDA-Public Use
  Company Number: US-PFIZER INC-2017075631

PATIENT
  Age: 42 Year
  Sex: Female
  Weight: 72.11 kg

DRUGS (1)
  1. IBRANCE [Suspect]
     Active Substance: PALBOCICLIB
     Indication: BREAST CANCER METASTATIC
     Dosage: 125 MG, CYCLIC (DAYS 1-21Q 28DAYS)
     Route: 048
     Dates: start: 20161229

REACTIONS (1)
  - White blood cell count decreased [Unknown]
